FAERS Safety Report 21199625 (Version 2)
Quarter: 2023Q1

REPORT INFORMATION
  Report Type: Report from Study
  Country: US (occurrence: US)
  Receive Date: 20220811
  Receipt Date: 20230207
  Transmission Date: 20230418
  Serious: Yes (Other)
  Sender: FDA-Public Use
  Company Number: US-NOVARTISPH-NVSC2022US180830

PATIENT
  Sex: Male

DRUGS (1)
  1. ENTRESTO [Suspect]
     Active Substance: SACUBITRIL\VALSARTAN
     Indication: Product used for unknown indication
     Dosage: 50 MG, BID (24.26 MG) (FOR APPROXIMATELY 2 YEARS)
     Route: 048

REACTIONS (3)
  - Femur fracture [Unknown]
  - Gait disturbance [Unknown]
  - Weight decreased [Unknown]
